FAERS Safety Report 16467348 (Version 1)
Quarter: 2019Q2

REPORT INFORMATION
  Report Type: Report from Study
  Country: None (occurrence: SA)
  Receive Date: 20190624
  Receipt Date: 20190624
  Transmission Date: 20190711
  Serious: Yes (Death)
  Sender: FDA-Public Use
  Company Number: SA-ABBVIE-19S-259-2830610-00

PATIENT
  Age: 80 Year
  Sex: Female

DRUGS (1)
  1. DUODOPA [Suspect]
     Active Substance: CARBIDOPA\LEVODOPA
     Indication: PARKINSON^S DISEASE
     Dosage: 2.0 ML
     Route: 050
     Dates: start: 20190208, end: 20190618

REACTIONS (1)
  - Death [Fatal]

NARRATIVE: CASE EVENT DATE: 20190618
